FAERS Safety Report 23769555 (Version 1)
Quarter: 2024Q2

REPORT INFORMATION
  Report Type: Spontaneous
  Country: US (occurrence: US)
  Receive Date: 20240422
  Receipt Date: 20240422
  Transmission Date: 20240716
  Serious: Yes (Other)
  Sender: FDA-Public Use
  Company Number: US-ABBVIE-5725887

PATIENT
  Age: 67 Year
  Sex: Female

DRUGS (1)
  1. LUMIGAN [Suspect]
     Active Substance: BIMATOPROST
     Indication: Glaucoma
     Dosage: FORM STRENGTH: 0.3MG/ML
     Route: 047
     Dates: start: 2021

REACTIONS (14)
  - Renal failure [Unknown]
  - Taste disorder [Unknown]
  - Pain [Not Recovered/Not Resolved]
  - Renal disorder [Unknown]
  - Flatulence [Unknown]
  - Eye pain [Not Recovered/Not Resolved]
  - Parosmia [Unknown]
  - Pain in extremity [Unknown]
  - Dyspepsia [Unknown]
  - Hypoaesthesia [Unknown]
  - Skin fissures [Not Recovered/Not Resolved]
  - Seizure [Unknown]
  - Gastrointestinal disorder [Unknown]
  - Pruritus [Unknown]

NARRATIVE: CASE EVENT DATE: 20230607
